FAERS Safety Report 24565993 (Version 4)
Quarter: 2025Q1

REPORT INFORMATION
  Report Type: Spontaneous
  Country: US (occurrence: US)
  Receive Date: 20241030
  Receipt Date: 20250221
  Transmission Date: 20250408
  Serious: Yes (Hospitalization)
  Sender: JOHNSON AND JOHNSON
  Company Number: US-JNJFOC-20241074607

PATIENT

DRUGS (1)
  1. HUMAN THROMBIN [Suspect]
     Active Substance: HUMAN THROMBIN
     Indication: Haemostasis
     Route: 061
     Dates: start: 20240815

REACTIONS (3)
  - Escherichia infection [Recovering/Resolving]
  - Brevibacterium infection [Recovering/Resolving]
  - Postoperative wound infection [Recovering/Resolving]

NARRATIVE: CASE EVENT DATE: 20240101
